FAERS Safety Report 24371367 (Version 1)
Quarter: 2024Q3

REPORT INFORMATION
  Report Type: Spontaneous
  Country: US (occurrence: US)
  Receive Date: 20240927
  Receipt Date: 20240927
  Transmission Date: 20241016
  Serious: No
  Sender: LAVIPHARM
  Company Number: US-Lavipharm SA-2162142

PATIENT

DRUGS (5)
  1. CLONIDINE [Suspect]
     Active Substance: CLONIDINE
  2. FLUOXETINE [Suspect]
     Active Substance: FLUOXETINE HYDROCHLORIDE
  3. GABAPENTIN [Suspect]
     Active Substance: GABAPENTIN
  4. QUETIAPINE [Suspect]
     Active Substance: QUETIAPINE
  5. CLONAZEPAM [Suspect]
     Active Substance: CLONAZEPAM

REACTIONS (2)
  - Tremor neonatal [Unknown]
  - Foetal exposure during pregnancy [Unknown]
